FAERS Safety Report 5499110-X (Version None)
Quarter: 2007Q4

REPORT INFORMATION
  Report Type: 
  Country: None (occurrence: None)
  Receive Date: 20071026
  Receipt Date: 20070601
  Transmission Date: 20080405
  Serious: No
  Sender: FDA-Public Use
  Company Number: A0653800A

PATIENT
  Age: 80 Year
  Sex: Female

DRUGS (13)
  1. ADVAIR DISKUS 100/50 [Suspect]
     Indication: DRUG USE FOR UNKNOWN INDICATION
     Dosage: 1PUFF TWICE PER DAY
     Route: 055
  2. ALBUTEROL [Concomitant]
  3. CELEBREX [Concomitant]
  4. HYZAAR [Concomitant]
  5. PARNATE [Concomitant]
  6. ISOSORBIDE DINITRATE [Concomitant]
  7. STELAZINE [Concomitant]
  8. PREDNISONE [Concomitant]
  9. ZOCOR [Concomitant]
  10. SINGULAIR [Concomitant]
  11. COUMADIN [Concomitant]
  12. OXYGEN [Concomitant]
  13. PROVENTIL [Concomitant]

REACTIONS (1)
  - VISUAL DISTURBANCE [None]
